FAERS Safety Report 25503642 (Version 1)
Quarter: 2025Q3

REPORT INFORMATION
  Report Type: Spontaneous
  Country: EU (occurrence: EU)
  Receive Date: 20250702
  Receipt Date: 20250702
  Transmission Date: 20251020
  Serious: Yes (Hospitalization)
  Sender: BIOGEN
  Company Number: EU-BIOGEN-2025BI01315557

PATIENT
  Sex: Female

DRUGS (3)
  1. TECFIDERA [Suspect]
     Active Substance: DIMETHYL FUMARATE
     Indication: Multiple sclerosis
     Route: 050
     Dates: start: 201411
  2. Cyclon (Dicyclomine and Paracetamol) [Concomitant]
     Indication: Product used for unknown indication
     Route: 050
  3. Valproin (Valproic acid) [Concomitant]
     Indication: Product used for unknown indication
     Route: 050

REACTIONS (7)
  - Road traffic accident [Recovered/Resolved]
  - Multiple sclerosis [Unknown]
  - Mental disorder [Unknown]
  - Constipation [Not Recovered/Not Resolved]
  - Increased appetite [Not Recovered/Not Resolved]
  - Flatulence [Unknown]
  - Vomiting [Unknown]
